FAERS Safety Report 16093100 (Version 1)
Quarter: 2019Q1

REPORT INFORMATION
  Report Type: Spontaneous
  Country: US (occurrence: US)
  Receive Date: 20190320
  Receipt Date: 20190320
  Transmission Date: 20190418
  Serious: No
  Sender: FDA-Public Use
  Company Number: US-TEVA-2019-US-1028445

PATIENT
  Sex: Female
  Weight: 71 kg

DRUGS (7)
  1. DILTIAZEM. [Concomitant]
     Active Substance: DILTIAZEM
  2. KEPPRA [Concomitant]
     Active Substance: LEVETIRACETAM
  3. ASPIRIN. [Concomitant]
     Active Substance: ASPIRIN
  4. LEVOTHYROXINE. [Concomitant]
     Active Substance: LEVOTHYROXINE
     Indication: THYROID DISORDER
  5. ATORVASTATIN [Concomitant]
     Active Substance: ATORVASTATIN
     Indication: BLOOD CHOLESTEROL INCREASED
  6. AJOVY [Suspect]
     Active Substance: FREMANEZUMAB-VFRM
  7. OMEPRAZOLE. [Concomitant]
     Active Substance: OMEPRAZOLE

REACTIONS (7)
  - Feeling hot [Unknown]
  - Hyperhidrosis [Unknown]
  - Headache [Unknown]
  - Artificial menopause [Unknown]
  - Discomfort [Unknown]
  - Abdominal pain upper [Unknown]
  - Pyrexia [Unknown]
